FAERS Safety Report 17287856 (Version 2)
Quarter: 2020Q1

REPORT INFORMATION
  Report Type: Report from Study
  Country: US (occurrence: US)
  Receive Date: 20200120
  Receipt Date: 20200226
  Transmission Date: 20200409
  Serious: No
  Sender: FDA-Public Use
  Company Number: NVSC2020US009978

PATIENT
  Sex: Female

DRUGS (2)
  1. TASIGNA [Suspect]
     Active Substance: NILOTINIB
     Indication: PRODUCT USED FOR UNKNOWN INDICATION
     Route: 048
  2. TASIGNA [Suspect]
     Active Substance: NILOTINIB
     Route: 048

REACTIONS (2)
  - Body temperature increased [Recovered/Resolved with Sequelae]
  - Protein total increased [Unknown]
